APPROVED DRUG PRODUCT: BENYLIN
Active Ingredient: DIPHENHYDRAMINE HYDROCHLORIDE
Strength: 12.5MG/5ML
Dosage Form/Route: SYRUP;ORAL
Application: N006514 | Product #004
Applicant: PARKE DAVIS DIV WARNER LAMBERT CO
Approved: Approved Prior to Jan 1, 1982 | RLD: No | RS: No | Type: DISCN